FAERS Safety Report 4621801-0 (Version None)
Quarter: 2005Q1

REPORT INFORMATION
  Report Type: 
  Country: None (occurrence: None)
  Receive Date: 20050329
  Receipt Date: 20050318
  Transmission Date: 20050727
  Serious: Yes (Hospitalization)
  Sender: FDA-Public Use
  Company Number: US-ROCHE-399313

PATIENT
  Age: 46 Year
  Sex: Male
  Weight: 58.1 kg

DRUGS (4)
  1. FUZEON [Suspect]
     Indication: HIV INFECTION
     Route: 058
     Dates: start: 20030915
  2. ZIAGEN [Concomitant]
     Indication: HIV INFECTION
  3. VIREAD [Concomitant]
     Indication: HIV INFECTION
  4. REYATAZ [Concomitant]
     Indication: HIV INFECTION

REACTIONS (9)
  - ANKLE FRACTURE [None]
  - DEPRESSION [None]
  - DIFFICULTY IN WALKING [None]
  - HYPOAESTHESIA [None]
  - MUSCULAR WEAKNESS [None]
  - NERVOUS SYSTEM DISORDER [None]
  - OEDEMA PERIPHERAL [None]
  - PAIN IN EXTREMITY [None]
  - PANCREATITIS [None]
